FAERS Safety Report 26024875 (Version 1)
Quarter: 2025Q4

REPORT INFORMATION
  Report Type: Spontaneous
  Country: US (occurrence: US)
  Receive Date: 20251111
  Receipt Date: 20251111
  Transmission Date: 20260118
  Serious: No
  Sender: NOVITIUM PHARMA
  Company Number: US-NOVITIUM PHARMA-000233

PATIENT
  Sex: Female

DRUGS (1)
  1. METHSUXIMIDE [Suspect]
     Active Substance: METHSUXIMIDE
     Indication: Epilepsy

REACTIONS (1)
  - Therapeutic response changed [Unknown]
